FAERS Safety Report 24289987 (Version 1)
Quarter: 2024Q3

REPORT INFORMATION
  Report Type: Report from Study
  Country: US (occurrence: US)
  Receive Date: 20240906
  Receipt Date: 20240906
  Transmission Date: 20241016
  Serious: No
  Sender: ALEXION PHARMACEUTICALS
  Company Number: US-AstraZeneca-CH-00697661A

PATIENT
  Age: 28 Year
  Sex: Female

DRUGS (1)
  1. ULTOMIRIS [Suspect]
     Active Substance: RAVULIZUMAB-CWVZ
     Indication: Myasthenia gravis
     Dosage: UNK
     Route: 042

REACTIONS (10)
  - Nausea [Unknown]
  - Hot flush [Unknown]
  - Chills [Unknown]
  - Fatigue [Unknown]
  - Decreased appetite [Unknown]
  - Back pain [Unknown]
  - Flank pain [Unknown]
  - Blood urine present [Unknown]
  - Dysuria [Unknown]
  - Micturition urgency [Unknown]

NARRATIVE: CASE EVENT DATE: 20240801
